FAERS Safety Report 20841964 (Version 3)
Quarter: 2022Q4

REPORT INFORMATION
  Report Type: Spontaneous
  Country: US (occurrence: US)
  Receive Date: 20220518
  Receipt Date: 20221006
  Transmission Date: 20230113
  Serious: No
  Sender: FDA-Public Use
  Company Number: US-BRISTOL-MYERS SQUIBB COMPANY-2022-025308

PATIENT
  Age: 71 Year
  Sex: Female

DRUGS (2)
  1. REVLIMID [Suspect]
     Active Substance: LENALIDOMIDE
     Indication: Plasma cell myeloma
     Dosage: TAKE 1 CAPSULE BY MOUTH DAILY FOR 21 DAYS ON THEN 7 DAYS OFF. REPEAT EVERY 28 DAYS
     Route: 048
     Dates: start: 20210922
  2. REVLIMID [Suspect]
     Active Substance: LENALIDOMIDE
     Dosage: TAKE 1 CAPSULE(10MG TOTAL)  BY MOUTH DAILY FOR 21 DAYS ON THEN 7 DAYS OFF. REPEAT EVERY 28 DAYS
     Route: 048

REACTIONS (4)
  - Paraesthesia [Unknown]
  - Product dose omission issue [Unknown]
  - Tooth abscess [Not Recovered/Not Resolved]
  - Taste disorder [Unknown]
